FAERS Safety Report 9059432 (Version 3)
Quarter: 2013Q2

REPORT INFORMATION
  Report Type: Spontaneous
  Country: US (occurrence: US)
  Receive Date: 20130212
  Receipt Date: 20130402
  Transmission Date: 20140414
  Serious: No
  Sender: FDA-Public Use
  Company Number: US-009507513-1302USA003675

PATIENT
  Age: 19 Year
  Sex: Female
  Weight: 56.69 kg

DRUGS (1)
  1. IMPLANON [Suspect]
     Indication: CONTRACEPTION
     Dosage: UNK
     Route: 059
     Dates: start: 201104

REACTIONS (6)
  - Menorrhagia [Unknown]
  - Weight increased [Unknown]
  - Weight decreased [Unknown]
  - Vaginal discharge [Unknown]
  - Muscle spasms [Unknown]
  - Menorrhagia [Unknown]
